FAERS Safety Report 8830704 (Version 1)
Quarter: 2012Q4

REPORT INFORMATION
  Report Type: 
  Country: BR (occurrence: BR)
  Receive Date: 20121008
  Receipt Date: 20121008
  Transmission Date: 20130627
  Serious: Yes (Hospitalization, Other)
  Sender: FDA-Public Use
  Company Number: BR-PFIZER INC-2012244011

PATIENT
  Age: 71 Year
  Sex: Male
  Weight: 45 kg

DRUGS (4)
  1. XALATAN [Suspect]
     Indication: INTRAOCULAR PRESSURE INCREASED
     Dosage: 1 drop in each eye, 1x/day
     Route: 047
     Dates: start: 2002
  2. XALATAN [Suspect]
     Dosage: 1 drop in the left eye
     Route: 047
  3. SOMALGIN CARDIO [Concomitant]
     Indication: BLOOD DISORDER
     Dosage: UNK
  4. ENALAPRIL [Concomitant]
     Dosage: UNK

REACTIONS (4)
  - Cerebrovascular accident [Unknown]
  - Cardiac failure [Unknown]
  - Cataract [Unknown]
  - Musculoskeletal disorder [Not Recovered/Not Resolved]
